FAERS Safety Report 5715270-7 (Version None)
Quarter: 2008Q2

REPORT INFORMATION
  Report Type: 
  Country: None (occurrence: None)
  Receive Date: 20080422
  Receipt Date: 20080407
  Transmission Date: 20081010
  Serious: Yes (Hospitalization, Other)
  Sender: FDA-Public Use
  Company Number: 2008S1005721

PATIENT
  Age: 54 Year
  Sex: Female

DRUGS (2)
  1. FUROSEMIDE TALBETS, USP (40 MG) [Suspect]
     Indication: CARDIAC FAILURE CONGESTIVE
     Dosage: 40 MG; DAILY; ORAL; 40 MG; DAILY; ORAL
     Route: 048
     Dates: start: 20080315, end: 20080329
  2. FUROSEMIDE TALBETS, USP (40 MG) [Suspect]
     Indication: CARDIAC FAILURE CONGESTIVE
     Dosage: 40 MG; DAILY; ORAL; 40 MG; DAILY; ORAL
     Route: 048
     Dates: start: 20080402, end: 20080404

REACTIONS (5)
  - DRUG INEFFECTIVE [None]
  - DYSPNOEA [None]
  - GENERALISED OEDEMA [None]
  - PHARMACEUTICAL PRODUCT COMPLAINT [None]
  - SELF-MEDICATION [None]
